FAERS Safety Report 15073038 (Version 1)
Quarter: 2018Q3

REPORT INFORMATION
  Report Type: Spontaneous
  Country: DE (occurrence: DE)
  Receive Date: 20180627
  Receipt Date: 20180627
  Transmission Date: 20181010
  Serious: Yes (Hospitalization)
  Sender: FDA-Public Use
  Company Number: DE-TEVA-2018-DE-911882

PATIENT
  Age: 24 Year
  Sex: Male
  Weight: 58 kg

DRUGS (11)
  1. AMPHO?MORONAL [Concomitant]
     Active Substance: AMPHOTERICIN B
     Dosage: 10 MG, 1?1?1?1 ,LOZENGES
     Route: 048
  2. ETOPOSIDE. [Suspect]
     Active Substance: ETOPOSIDE
     Route: 042
  3. PANTOPRAZOL [Concomitant]
     Active Substance: PANTOPRAZOLE SODIUM
     Dosage: 1?0?0?0
     Route: 048
  4. RITUXIMAB. [Suspect]
     Active Substance: RITUXIMAB
     Route: 042
  5. CARMUSTIN [Suspect]
     Active Substance: CARMUSTINE
     Route: 042
  6. MELPHALAN. [Suspect]
     Active Substance: MELPHALAN
     Route: 042
  7. CYTARABIN [Suspect]
     Active Substance: CYTARABINE
     Route: 042
  8. NEUPOGEN 48MIO.E. [Concomitant]
     Dosage: 48 MIO IE, 1?0?0?0, ?INJECTION / INFUSION
     Route: 058
  9. METOPROLOL. [Concomitant]
     Active Substance: METOPROLOL
     Dosage: 1?0?1?0
     Route: 048
  10. CIPROFLOXACIN. [Concomitant]
     Active Substance: CIPROFLOXACIN
     Dosage: 1?0?1?0
     Route: 048
  11. FOLSAEURE [Concomitant]
     Active Substance: FOLIC ACID
     Dosage: 1?0?0?0
     Route: 048

REACTIONS (3)
  - Pollakiuria [Unknown]
  - Cough [Unknown]
  - Pyrexia [Unknown]
